FAERS Safety Report 7723190-1 (Version None)
Quarter: 2011Q3

REPORT INFORMATION
  Report Type: 
  Country: None (occurrence: None)
  Receive Date: 20110826
  Receipt Date: 20110810
  Transmission Date: 20111222
  Serious: Yes (Death)
  Sender: FDA-Public Use
  Company Number: FK201101662

PATIENT
  Age: 5 Year
  Sex: Male

DRUGS (8)
  1. EPIRUBICIN [Suspect]
     Indication: BURKITT'S LYMPHOMA
     Dosage: 360 MG/M2
  2. VINCRISTINE [Suspect]
     Indication: BURKITT'S LYMPHOMA
     Dosage: 3 MG/M2
  3. TRIMETHOPRIM + SULFAMETHOXAZOLE [Concomitant]
  4. METHOTREXATE [Suspect]
     Indication: BURKITT'S LYMPHOMA
     Dosage: 6 G/M2
  5. CYTARABINE [Suspect]
     Indication: BURKITT'S LYMPHOMA
     Dosage: 26 G/M2
  6. ETOPOSIDE [Suspect]
     Indication: BURKITT'S LYMPHOMA
     Dosage: 110 MG/M2
  7. CYCLOPHOSPHAMIDE [Suspect]
     Indication: BURKITT'S LYMPHOMA
     Dosage: 6 G/M2
  8. ALLOPURINOL [Concomitant]

REACTIONS (4)
  - PULMONARY VENO-OCCLUSIVE DISEASE [None]
  - PULMONARY HYPERTENSION [None]
  - CARDIAC FAILURE [None]
  - TOXICITY TO VARIOUS AGENTS [None]
